FAERS Safety Report 7900871-8 (Version None)
Quarter: 2011Q4

REPORT INFORMATION
  Report Type: 
  Country: None (occurrence: None)
  Receive Date: 20111104
  Receipt Date: 20111020
  Transmission Date: 20120403
  Serious: Yes (Hospitalization)
  Sender: FDA-Public Use
  Company Number: 1090506

PATIENT
  Age: 52 Year
  Sex: Male

DRUGS (2)
  1. GEMCITABINE HYDROCHLORIDE [Suspect]
     Indication: BLADDER NEOPLASM
     Dosage: 2028 MG MILLIGRAM(S), 21 DAY, INTRAVENOUS (NOT OTHERWISE SPECIFIED)
     Route: 042
     Dates: start: 20110329, end: 20110405
  2. CARBOPLATIN [Suspect]
     Indication: BLADDER NEOPLASM
     Dosage: 564,5 MG ON DAYS 1 AND 8 EVERY 21 DAYS INTRAVENOUS (NOT OTHERWISE SPECIFIED)
     Route: 042
     Dates: start: 20110329, end: 20110405

REACTIONS (4)
  - PANCYTOPENIA [None]
  - COLITIS [None]
  - PYREXIA [None]
  - DIARRHOEA [None]
